FAERS Safety Report 6803790-3 (Version None)
Quarter: 2010Q2

REPORT INFORMATION
  Report Type: 
  Country: None (occurrence: None)
  Receive Date: 20100628
  Receipt Date: 20100618
  Transmission Date: 20101027
  Serious: Yes (Disabling)
  Sender: FDA-Public Use
  Company Number: NZ-WYE-G06290110

PATIENT
  Sex: Male

DRUGS (1)
  1. EFFEXOR XR [Suspect]
     Dosage: INCREASED FROM 37.5MG TO 75MG TO 150MG TO 225MG OVER 2.5 WEEKS

REACTIONS (3)
  - BEDRIDDEN [None]
  - CONDITION AGGRAVATED [None]
  - DEPRESSED MOOD [None]
